FAERS Safety Report 23492139 (Version 1)
Quarter: 2024Q1

REPORT INFORMATION
  Report Type: Report from Study
  Country: US (occurrence: US)
  Receive Date: 20240207
  Receipt Date: 20240207
  Transmission Date: 20240410
  Serious: No
  Sender: FDA-Public Use
  Company Number: US-ORG100014127-2022000828

PATIENT
  Age: 41 Year
  Sex: Female

DRUGS (8)
  1. LYSODREN [Suspect]
     Active Substance: MITOTANE
     Indication: Adrenal gland cancer
     Dosage: 4 TABLETS FOUR TIMES DAILY
     Route: 048
     Dates: start: 20220706
  2. LYSODREN [Suspect]
     Active Substance: MITOTANE
     Indication: Adrenal gland cancer
     Dosage: 6 TABLETS TWICE DAILY
     Route: 048
     Dates: end: 2023
  3. HYDROCORT TAB 10MG [Concomitant]
     Indication: Product used for unknown indication
  4. LOVENOX INJ 30/0.3ML [Concomitant]
     Indication: Product used for unknown indication
  5. OCTREOTIDE ACETATE [Concomitant]
     Active Substance: OCTREOTIDE ACETATE
     Indication: Product used for unknown indication
  6. OXYCODONE TAB 10MG [Concomitant]
     Indication: Product used for unknown indication
  7. TYLENOL TAB 500MG [Concomitant]
     Indication: Product used for unknown indication
  8. ZENPEP CAP 20000UNT [Concomitant]
     Indication: Product used for unknown indication

REACTIONS (7)
  - Decreased appetite [Not Recovered/Not Resolved]
  - Fatigue [Not Recovered/Not Resolved]
  - Nausea [Not Recovered/Not Resolved]
  - Diarrhoea [Not Recovered/Not Resolved]
  - Headache [Not Recovered/Not Resolved]
  - Dizziness [Not Recovered/Not Resolved]
  - Exposure during pregnancy [Not Recovered/Not Resolved]

NARRATIVE: CASE EVENT DATE: 20220101
